FAERS Safety Report 13942135 (Version 3)
Quarter: 2017Q4

REPORT INFORMATION
  Report Type: Spontaneous
  Country: JP (occurrence: JP)
  Receive Date: 20170906
  Receipt Date: 20171213
  Transmission Date: 20180320
  Serious: Yes (Death)
  Sender: FDA-Public Use
  Company Number: JP-ALLERGAN-1748689US

PATIENT
  Age: 28 Year
  Sex: Male

DRUGS (16)
  1. TRIAZOLAM. [Concomitant]
     Active Substance: TRIAZOLAM
     Dosage: UNK
     Dates: start: 20131029, end: 20170812
  2. FLUNITRAZEPAM [Concomitant]
     Active Substance: FLUNITRAZEPAM
     Dosage: UNK
     Dates: end: 20170812
  3. BLONANSERIN [Concomitant]
     Active Substance: BLONANSERIN
     Dosage: UNK
     Dates: start: 20140625, end: 20170807
  4. YOKUKANSAN [Concomitant]
     Active Substance: HERBALS
  5. ASENAPINE MALEATE - BP [Suspect]
     Active Substance: ASENAPINE MALEATE
     Indication: HALLUCINATION
  6. PINDOLOL. [Concomitant]
     Active Substance: PINDOLOL
     Dosage: UNK
     Dates: start: 20130618, end: 20170812
  7. ZYLORIC [Concomitant]
     Active Substance: ALLOPURINOL
  8. ASENAPINE MALEATE - BP [Suspect]
     Active Substance: ASENAPINE MALEATE
     Indication: DELUSION
  9. FLUVOXAMINE MALEATE. [Concomitant]
     Active Substance: FLUVOXAMINE MALEATE
     Dosage: UNK
     Dates: start: 20130423, end: 20170812
  10. EPINASTINE HYDROCHLORIDE W/PSEUDOEPHEDRINE [Concomitant]
  11. ASENAPINE MALEATE - BP [Suspect]
     Active Substance: ASENAPINE MALEATE
     Indication: SCHIZOPHRENIA
     Dosage: 5 MG, BID
     Route: 060
     Dates: start: 20170808, end: 20170812
  12. BROMAZEPAM [Concomitant]
     Active Substance: BROMAZEPAM
     Dosage: UNK
     Dates: start: 20140604, end: 20170812
  13. URSO [Concomitant]
     Active Substance: URSODIOL
  14. RISPERIDONE. [Concomitant]
     Active Substance: RISPERIDONE
     Dosage: UNK
     Dates: start: 20160614, end: 20170807
  15. VALPROATE SODIUM. [Concomitant]
     Active Substance: VALPROATE SODIUM
     Dosage: UNK
     Dates: end: 20170812
  16. PROMETHAZINE [Concomitant]
     Active Substance: PROMETHAZINE\PROMETHAZINE HYDROCHLORIDE
     Dosage: UNK
     Dates: start: 20101105, end: 20170812

REACTIONS (1)
  - Completed suicide [Fatal]

NARRATIVE: CASE EVENT DATE: 20170812
